FAERS Safety Report 15436246 (Version 2)
Quarter: 2018Q4

REPORT INFORMATION
  Report Type: Spontaneous
  Country: DE (occurrence: DE)
  Receive Date: 20180927
  Receipt Date: 20181108
  Transmission Date: 20190204
  Serious: Yes (Hospitalization)
  Sender: FDA-Public Use
  Company Number: DE-ALEXION PHARMACEUTICALS INC.-A201812559

PATIENT
  Age: 1 Year
  Sex: Female
  Weight: 6.81 kg

DRUGS (2)
  1. STRENSIQ [Suspect]
     Active Substance: ASFOTASE ALFA
     Indication: HYPOPHOSPHATASIA
     Dosage: 5 MG/KG, TIW
     Route: 058
  2. SILDENAFIL. [Concomitant]
     Active Substance: SILDENAFIL
     Indication: PRODUCT USED FOR UNKNOWN INDICATION
     Dosage: 1.5 UNK, QD
     Route: 065

REACTIONS (8)
  - Upper respiratory tract infection [Unknown]
  - Urine ketone body present [Unknown]
  - Hyponatraemia [Unknown]
  - Blood ketone body present [Unknown]
  - Vomiting [Recovered/Resolved]
  - Selective eating disorder [Recovered/Resolved]
  - Enteritis [Recovered/Resolved]
  - Norovirus test positive [Unknown]

NARRATIVE: CASE EVENT DATE: 20180902
